FAERS Safety Report 5389083-2 (Version None)
Quarter: 2007Q3

REPORT INFORMATION
  Report Type: 
  Country: None (occurrence: None)
  Receive Date: 20070713
  Receipt Date: 20070704
  Transmission Date: 20080115
  Serious: Yes (Hospitalization)
  Sender: FDA-Public Use
  Company Number: 163-21880-07041260

PATIENT
  Age: 21 Year
  Sex: Male
  Weight: 67 kg

DRUGS (2)
  1. REVLIMID [Suspect]
     Indication: EPENDYMOMA MALIGNANT
     Dosage: 52 MG/M2, QD X21 DAYS Q28D, ORAL
     Route: 048
     Dates: start: 20060517, end: 20061030
  2. REVLIMID [Suspect]
     Indication: EPENDYMOMA MALIGNANT
     Dosage: 52 MG/M2, QD X21 DAYS Q28D, ORAL
     Route: 048
     Dates: start: 20070207, end: 20070421

REACTIONS (8)
  - ABSCESS LIMB [None]
  - CELLULITIS [None]
  - DIARRHOEA [None]
  - LEUKOCYTOSIS [None]
  - MYOSITIS [None]
  - NEUTROPENIA [None]
  - PLATELET COUNT DECREASED [None]
  - STAPHYLOCOCCAL INFECTION [None]
